FAERS Safety Report 12567054 (Version 3)
Quarter: 2019Q4

REPORT INFORMATION
  Report Type: Report from Study
  Country: CO (occurrence: CO)
  Receive Date: 20160718
  Receipt Date: 20191231
  Transmission Date: 20200122
  Serious: Yes (Death, Hospitalization, Other)
  Sender: FDA-Public Use
  Company Number: CO-REGENERON PHARMACEUTICALS, INC.-2016-19314

PATIENT

DRUGS (1)
  1. EYLEA [Suspect]
     Active Substance: AFLIBERCEPT
     Indication: DIABETIC RETINAL OEDEMA
     Dosage: 1 DF, Q2MON
     Dates: start: 20140720, end: 2015

REACTIONS (4)
  - Renal injury [Not Recovered/Not Resolved]
  - Lung disorder [Unknown]
  - Hypertensive crisis [Not Recovered/Not Resolved]
  - Pneumothorax [Fatal]

NARRATIVE: CASE EVENT DATE: 20160618
